FAERS Safety Report 9911470 (Version 1)
Quarter: 2014Q1

REPORT INFORMATION
  Report Type: Report from Study
  Country: CA (occurrence: CA)
  Receive Date: 20140219
  Receipt Date: 20140219
  Transmission Date: 20141002
  Serious: Yes (Hospitalization, Other)
  Sender: FDA-Public Use
  Company Number: PHHY2014CA019928

PATIENT
  Age: 59 Year
  Sex: Female

DRUGS (10)
  1. ACLASTA [Suspect]
     Indication: OSTEOPOROSIS POSTMENOPAUSAL
     Dosage: 5 MG, UNK
     Route: 042
     Dates: start: 20101124
  2. ACLASTA [Suspect]
     Dosage: 5 MG, UNK
     Route: 042
     Dates: start: 20111221
  3. ACLASTA [Suspect]
     Dosage: 5 MG, UNK
     Route: 042
     Dates: start: 20121219
  4. HUMIRA [Concomitant]
     Dosage: UNK UKN, UNK
  5. SYNTHROID [Concomitant]
     Dosage: UNK UKN, UNK
  6. CYMBALTA [Concomitant]
     Dosage: UNK UKN, UNK
  7. TRAZODONE [Concomitant]
     Dosage: UNK UKN, UNK
  8. NAPROSYN [Concomitant]
     Dosage: UNK UKN, PRN
  9. LANSOPRAZOLE [Concomitant]
     Dosage: UNK UKN, UNK
  10. METHOTREXAT [Concomitant]
     Dosage: UNK UKN, UNK

REACTIONS (1)
  - Kidney infection [Recovered/Resolved]
